FAERS Safety Report 18776074 (Version 1)
Quarter: 2021Q1

REPORT INFORMATION
  Report Type: Spontaneous
  Country: FI (occurrence: FI)
  Receive Date: 20210122
  Receipt Date: 20210122
  Transmission Date: 20210419
  Serious: Yes (Disabling)
  Sender: FDA-Public Use
  Company Number: FI-BAYER-2021-025347

PATIENT
  Age: 43 Year
  Sex: Female

DRUGS (1)
  1. QLAIRA [Suspect]
     Active Substance: DIENOGEST\ESTRADIOL VALERATE
     Indication: MENORRHAGIA
     Route: 048

REACTIONS (6)
  - Dizziness [Recovered/Resolved]
  - Amnesia [Recovered/Resolved]
  - Tearfulness [Recovered/Resolved]
  - Impaired work ability [Recovered/Resolved]
  - Depression [Recovered/Resolved]
  - Arrhythmia [Recovered/Resolved]

NARRATIVE: CASE EVENT DATE: 201910
